FAERS Safety Report 17192164 (Version 2)
Quarter: 2020Q3

REPORT INFORMATION
  Report Type: Spontaneous
  Country: JP (occurrence: JP)
  Receive Date: 20191223
  Receipt Date: 20200716
  Transmission Date: 20201102
  Serious: Yes (Hospitalization)
  Sender: FDA-Public Use
  Company Number: JP-BIOGEN-2019BI00819910

PATIENT
  Age: 51 Year
  Sex: Female

DRUGS (5)
  1. LAFUTIDINE [Concomitant]
     Active Substance: LAFUTIDINE
     Route: 065
  2. NEUROTROPIN [Concomitant]
     Active Substance: NEUROTROPIN
     Route: 065
  3. LYRICA [Concomitant]
     Active Substance: PREGABALIN
     Route: 065
  4. ONEALFA [Concomitant]
     Active Substance: ALFACALCIDOL
     Route: 065
  5. TECFIDERA [Suspect]
     Active Substance: DIMETHYL FUMARATE
     Indication: MULTIPLE SCLEROSIS
     Route: 048
     Dates: start: 20180926

REACTIONS (2)
  - Hernia [Unknown]
  - Obesity [Unknown]
